FAERS Safety Report 7077858-3 (Version None)
Quarter: 2010Q4

REPORT INFORMATION
  Report Type: 
  Country: None (occurrence: None)
  Receive Date: 20101101
  Receipt Date: 20101019
  Transmission Date: 20110411
  Serious: Yes (Other)
  Sender: FDA-Public Use
  Company Number: CH-ELI_LILLY_AND_COMPANY-CH201010005107

PATIENT
  Age: 15 Year
  Sex: Male
  Weight: 70 kg

DRUGS (1)
  1. STRATTERA [Suspect]
     Indication: ATTENTION DEFICIT/HYPERACTIVITY DISORDER
     Dosage: MG, DAILY (1/D)
     Route: 048
     Dates: start: 20100912, end: 20100921

REACTIONS (6)
  - DYSTONIA [None]
  - FORMICATION [None]
  - GAIT DISTURBANCE [None]
  - MUSCLE DISORDER [None]
  - PARAESTHESIA [None]
  - TRISMUS [None]
